APPROVED DRUG PRODUCT: BARACLUDE
Active Ingredient: ENTECAVIR
Strength: 0.05MG/ML
Dosage Form/Route: SOLUTION;ORAL
Application: N021798 | Product #001
Applicant: BRISTOL MYERS SQUIBB
Approved: Mar 29, 2005 | RLD: Yes | RS: Yes | Type: RX